FAERS Safety Report 8531149-X (Version None)
Quarter: 2012Q3

REPORT INFORMATION
  Report Type: 
  Country: None (occurrence: None)
  Receive Date: 20120723
  Receipt Date: 20120713
  Transmission Date: 20120928
  Serious: Yes (Hospitalization, Other)
  Sender: FDA-Public Use
  Company Number: US-ASTRAZENECA-2011SE62299

PATIENT
  Age: 58 Year
  Sex: Female

DRUGS (5)
  1. PROTONIX [Concomitant]
  2. SYMBICORT [Suspect]
     Route: 055
  3. NEXIUM [Suspect]
     Route: 048
  4. OMEPRAZOLE [Suspect]
     Route: 048
  5. ACCOLATE [Suspect]
     Route: 048

REACTIONS (4)
  - UPPER LIMB FRACTURE [None]
  - HAND FRACTURE [None]
  - DRUG INEFFECTIVE [None]
  - BARRETT'S OESOPHAGUS [None]
